FAERS Safety Report 7993295-9 (Version None)
Quarter: 2011Q4

REPORT INFORMATION
  Report Type: 
  Country: None (occurrence: None)
  Receive Date: 20111219
  Receipt Date: 20110722
  Transmission Date: 20120403
  Serious: No
  Sender: FDA-Public Use
  Company Number: US-ASTRAZENECA-2011SE44473

PATIENT
  Age: 65 Year
  Sex: Female

DRUGS (1)
  1. CRESTOR [Suspect]
     Route: 048

REACTIONS (4)
  - TACHYCARDIA [None]
  - BLOOD CALCIUM INCREASED [None]
  - BLOOD SODIUM INCREASED [None]
  - ELECTROLYTE IMBALANCE [None]
